FAERS Safety Report 10051857 (Version 1)
Quarter: 2014Q2

REPORT INFORMATION
  Report Type: Spontaneous
  Country: FR (occurrence: FR)
  Receive Date: 20140402
  Receipt Date: 20140402
  Transmission Date: 20141212
  Serious: Yes (Disabling)
  Sender: FDA-Public Use
  Company Number: FR-PFIZER INC-2014088188

PATIENT
  Age: 64 Year
  Sex: Male
  Weight: 67 kg

DRUGS (5)
  1. TAHOR [Suspect]
     Indication: PROPHYLAXIS
     Dosage: 20 MG, DAILY
     Route: 048
     Dates: start: 200411, end: 20120522
  2. TAHOR [Suspect]
     Indication: ANGINA PECTORIS
  3. KARDEGIC [Concomitant]
     Dosage: 160 MG, 1X/DAY
     Route: 048
     Dates: start: 200411
  4. ESOMEPRAZOLE [Concomitant]
     Dosage: 20 MG, 1X/DAY
     Route: 048
     Dates: start: 200411
  5. ATENOLOL [Concomitant]
     Dosage: UNK
     Dates: end: 20100311

REACTIONS (2)
  - Osteoarthritis [Unknown]
  - Raynaud^s phenomenon [Unknown]
